FAERS Safety Report 12489904 (Version 1)
Quarter: 2016Q2

REPORT INFORMATION
  Report Type: Report from Study
  Country: FR (occurrence: FR)
  Receive Date: 20160622
  Receipt Date: 20160622
  Transmission Date: 20160815
  Serious: Yes (Death, Hospitalization, Other)
  Sender: FDA-Public Use
  Company Number: PHHY2016FR082493

PATIENT
  Age: 69 Year
  Sex: Female

DRUGS (1)
  1. AFINITOR [Suspect]
     Active Substance: EVEROLIMUS
     Indication: BREAST CANCER
     Dosage: 5 MG, QD (DAILY)
     Route: 048
     Dates: start: 20150917, end: 20151215

REACTIONS (6)
  - Large intestinal obstruction [Fatal]
  - Multiple organ dysfunction syndrome [Fatal]
  - Ileus [Unknown]
  - Gastrointestinal haemorrhage [Unknown]
  - Faecaloma [Unknown]
  - General physical health deterioration [Unknown]

NARRATIVE: CASE EVENT DATE: 20160421
